FAERS Safety Report 7475027-6 (Version None)
Quarter: 2011Q1

REPORT INFORMATION
  Report Type: 
  Country: None (occurrence: None)
  Receive Date: 20110302
  Receipt Date: 20101213
  Transmission Date: 20110831
  Serious: Yes (Other)
  Sender: FDA-Public Use
  Company Number: 163-21880-10090994

PATIENT
  Age: 67 Year
  Sex: Female

DRUGS (29)
  1. REVLIMID [Suspect]
  2. PREDNISONE [Concomitant]
  3. ANUSOL-HC (ANUSOL-HC) [Concomitant]
  4. REVLIMID [Suspect]
     Indication: MYELOFIBROSIS
     Dosage: SEE IMAGE
     Route: 048
     Dates: start: 20100114
  5. REVLIMID [Suspect]
     Indication: MYELOFIBROSIS
     Dosage: SEE IMAGE
     Route: 048
     Dates: start: 20100901, end: 20101213
  6. REVLIMID [Suspect]
     Indication: MYELOFIBROSIS
     Dosage: SEE IMAGE
     Route: 048
     Dates: start: 20100606
  7. REVLIMID [Suspect]
     Indication: MYELOFIBROSIS
     Dosage: SEE IMAGE
     Route: 048
     Dates: start: 20100817
  8. PROCTOFOAM HC (PROCTOFOAM HC) [Concomitant]
  9. BACTRIM [Concomitant]
  10. METOPROLOL SUCCINATE [Concomitant]
  11. OMEPRAZOLE [Concomitant]
  12. POLYSACCHARIDE IRON (POLYSACCHARIDE-IRON COMPLEX) [Concomitant]
  13. REVLIMID [Suspect]
  14. LOMOTIL [Concomitant]
  15. LISINOPRIL [Concomitant]
  16. VITAMIN D [Concomitant]
  17. CALTRATE 600 + D (CALCITE D) [Concomitant]
  18. CYANOCOBALAMIN [Concomitant]
  19. LABETALOL HCL (LABETALOL HYDROCHLORIDE) [Concomitant]
  20. VITAMIN B12 [Concomitant]
  21. ASPIRIN [Concomitant]
  22. GLIMEPIRIDE [Concomitant]
  23. FOLIC ACID [Concomitant]
  24. CLONAZEPAM [Concomitant]
  25. CIPRO [Concomitant]
  26. LANTUS [Concomitant]
  27. PROZAC [Concomitant]
  28. KAYEXALATE [Concomitant]
  29. METFORMIN HCL (METFORMIN HYDROCHLORIDE) [Concomitant]

REACTIONS (8)
  - FATIGUE [None]
  - MYALGIA [None]
  - WHITE BLOOD CELL COUNT DECREASED [None]
  - NEUTROPHIL COUNT DECREASED [None]
  - HAEMOGLOBIN DECREASED [None]
  - ABDOMINAL DISTENSION [None]
  - OEDEMA PERIPHERAL [None]
  - PLATELET COUNT DECREASED [None]
